FAERS Safety Report 9191407 (Version 1)
Quarter: 2013Q1

REPORT INFORMATION
  Report Type: Spontaneous
  Country: US (occurrence: US)
  Receive Date: 20130326
  Receipt Date: 20130326
  Transmission Date: 20140127
  Serious: Yes (Other)
  Sender: FDA-Public Use
  Company Number: CHPA2013US005106

PATIENT
  Sex: 0

DRUGS (7)
  1. EX-LAX REG STR CHOCOLATED LAX PCS SEN [Suspect]
     Indication: MEGACOLON
     Dosage: 9 DF, QN
     Route: 048
     Dates: start: 20120314, end: 20130317
  2. EX-LAX REG STR CHOCOLATED LAX PCS SEN [Suspect]
     Indication: CONSTIPATION
     Dosage: 3DF, QN
     Route: 048
     Dates: start: 201211, end: 20130308
  3. EX-LAX REG STR CHOCOLATED LAX PCS SEN [Suspect]
     Dosage: 5 DF, QN
     Route: 048
     Dates: start: 20130309, end: 20130310
  4. EX-LAX REG STR CHOCOLATED LAX PCS SEN [Suspect]
     Dosage: 6 DF, QN
     Route: 048
     Dates: start: 20130311, end: 20130311
  5. EX-LAX REG STR CHOCOLATED LAX PCS SEN [Suspect]
     Dosage: 7 DF, QN
     Route: 048
     Dates: start: 20130312, end: 20130312
  6. EX-LAX REG STR CHOCOLATED LAX PCS SEN [Suspect]
     Dosage: 8 DF, QN
     Route: 048
     Dates: start: 20130313, end: 20130313
  7. EX-LAX REG STR CHOCOLATED LAX PCS SEN [Suspect]
     Dosage: 8 DF, QN
     Route: 048
     Dates: start: 20130318

REACTIONS (4)
  - Urinary tract infection [Recovered/Resolved]
  - Off label use [Unknown]
  - Prescribed overdose [Unknown]
  - Incorrect drug administration duration [Unknown]
